FAERS Safety Report 14044180 (Version 1)
Quarter: 2017Q4

REPORT INFORMATION
  Report Type: Spontaneous
  Country: NL (occurrence: NL)
  Receive Date: 20171004
  Receipt Date: 20171004
  Transmission Date: 20180321
  Serious: Yes (Life-Threatening, Hospitalization)
  Sender: FDA-Public Use
  Company Number: NL-ALLERGAN-1756127US

PATIENT
  Age: 20 Day
  Sex: Male
  Weight: 3 kg

DRUGS (5)
  1. TEMAZEPAM. [Concomitant]
     Active Substance: TEMAZEPAM
     Indication: PRODUCT USED FOR UNKNOWN INDICATION
     Dosage: DECREASED FROM WEEK 20 AND STOPPED IN WEEK 32
     Route: 064
  2. OXAZEPAM. [Concomitant]
     Active Substance: OXAZEPAM
     Indication: PRODUCT USED FOR UNKNOWN INDICATION
     Dosage: GIVEN INCIDENTLY FROM WEEK 32.
     Route: 064
  3. OXYCODON HYDROCHLORIDE [Concomitant]
     Indication: PRODUCT USED FOR UNKNOWN INDICATION
     Dosage: DECREASED FROM WEEK 20 AND STOPPED IN WEEK 32.
     Route: 064
  4. ALPRAZOLAM. [Concomitant]
     Active Substance: ALPRAZOLAM
     Indication: PRODUCT USED FOR UNKNOWN INDICATION
     Dosage: DECREASED FROM WEEK 20 AND STOPPED IN WEEK 32.
     Route: 064
  5. CITALOPRAM HYDROBROMIDE - BP [Suspect]
     Active Substance: CITALOPRAM HYDROBROMIDE
     Indication: MATERNAL EXPOSURE TIMING UNSPECIFIED
     Dosage: UNK
     Route: 064

REACTIONS (5)
  - Hypoglycaemia neonatal [Recovering/Resolving]
  - Convulsion neonatal [Recovering/Resolving]
  - Foetal exposure during pregnancy [Unknown]
  - Hypertonia neonatal [Recovering/Resolving]
  - Congenital central hypoventilation syndrome [Recovering/Resolving]
